FAERS Safety Report 5924774-3 (Version None)
Quarter: 2008Q4

REPORT INFORMATION
  Report Type: 
  Country: None (occurrence: None)
  Receive Date: 20081017
  Receipt Date: 20081007
  Transmission Date: 20090506
  Serious: Yes (Other)
  Sender: FDA-Public Use
  Company Number: DSU-2008-01628

PATIENT
  Age: 73 Year
  Sex: Female
  Weight: 69.8539 kg

DRUGS (5)
  1. WELCHOL [Suspect]
     Indication: HYPERLIPIDAEMIA
     Dosage: 3750 MG (1875 MG, BID) ,PER ORAL
     Route: 048
     Dates: start: 20080910
  2. METOPROLOL (METOPROLOL) (50 MILLIGRAM, TABLET) (METOPROLOL) [Suspect]
     Indication: HEART RATE IRREGULAR
     Dosage: 100 MG (50 MG, BID) ,PER ORAL
     Route: 048
     Dates: start: 20081002
  3. METFORMIN (METFORMIN) (1000 MILLIGRAM, TABLET) (METFORMIN) [Concomitant]
  4. CARTIA (DILTIAZEM HYDROCHLORIDE) (180 MILLIGRAM, TABLET) (DILTIAZEM HY [Concomitant]
  5. SINGULAIR (MONTELUKAST) (TABLET) (MONTELUKAST) [Concomitant]

REACTIONS (9)
  - ANXIETY [None]
  - BLOOD PRESSURE DIASTOLIC DECREASED [None]
  - BLOOD PRESSURE SYSTOLIC INCREASED [None]
  - DEPRESSION [None]
  - HEART RATE DECREASED [None]
  - HEART RATE INCREASED [None]
  - HEART RATE IRREGULAR [None]
  - PAIN IN EXTREMITY [None]
  - SOMNOLENCE [None]
